FAERS Safety Report 6023821-0 (Version None)
Quarter: 2008Q4

REPORT INFORMATION
  Report Type: 
  Country: None (occurrence: None)
  Receive Date: 20081230
  Receipt Date: 20081218
  Transmission Date: 20090506
  Serious: Yes (Hospitalization, Other)
  Sender: FDA-Public Use
  Company Number: JP-PFIZER INC-2008154921

PATIENT

DRUGS (17)
  1. VFEND [Suspect]
     Indication: ASPERGILLOSIS
     Dosage: 200 MG, 2X/DAY
     Route: 048
     Dates: start: 20070401
  2. URSO 250 [Concomitant]
     Route: 048
  3. ALLOPURINOL [Concomitant]
     Route: 048
  4. FAMOTIDINE [Concomitant]
     Route: 048
  5. PURSENNID [Concomitant]
     Route: 048
  6. MUCOSOLVAN [Concomitant]
     Route: 048
  7. KALIMATE [Concomitant]
     Route: 048
  8. ALL OTHER THERAPEUTIC PRODUCTS [Concomitant]
     Route: 048
  9. DASEN [Concomitant]
     Route: 048
  10. KREMEZIN [Concomitant]
     Route: 048
  11. MUCODYNE [Concomitant]
     Route: 048
  12. SELBEX [Concomitant]
     Route: 048
  13. ADALAT CC [Concomitant]
     Route: 048
  14. INSULIN [Concomitant]
     Route: 042
  15. LOXONIN [Concomitant]
  16. MICARDIS [Concomitant]
     Route: 048
  17. OLMETEC [Concomitant]
     Route: 048
     Dates: start: 20081117

REACTIONS (2)
  - RENAL FAILURE ACUTE [None]
  - RHABDOMYOLYSIS [None]
